FAERS Safety Report 9349845 (Version 3)
Quarter: 2013Q2

REPORT INFORMATION
  Report Type: Spontaneous
  Country: US (occurrence: None)
  Receive Date: 20130611
  Receipt Date: 20130621
  Transmission Date: 20140414
  Serious: Yes (Other)
  Sender: FDA-Public Use
  Company Number: 2013-1881

PATIENT
  Age: 40 Year
  Sex: Female
  Weight: 52 kg

DRUGS (4)
  1. SOMATULINE DEPOT [Suspect]
     Indication: ACROMEGALY
     Dosage: 90 MG (90 MG, 1 IN 28 D)
     Route: 058
     Dates: start: 20130426
  2. LEVOXYL (LEVOTHYROXINE SODIUM) [Concomitant]
  3. ENBREL (ETANERCEPT) [Concomitant]
  4. OMEPRAZOLE (OMEPRAZOLE) [Concomitant]

REACTIONS (10)
  - Diarrhoea [None]
  - Nausea [None]
  - Abdominal pain [None]
  - Insomnia [None]
  - Fatigue [None]
  - Asthenia [None]
  - Gastrointestinal sounds abnormal [None]
  - Injection site reaction [None]
  - Abdominal pain upper [None]
  - Emotional distress [None]
